FAERS Safety Report 5746091-7 (Version None)
Quarter: 2008Q2

REPORT INFORMATION
  Report Type: 
  Country: None (occurrence: None)
  Receive Date: 20080522
  Receipt Date: 20080212
  Transmission Date: 20081010
  Serious: No
  Sender: FDA-Public Use
  Company Number: A0709109A

PATIENT
  Age: 78 Year
  Sex: Female

DRUGS (6)
  1. BACTROBAN [Suspect]
     Dosage: 1APP TWICE PER DAY
     Route: 061
     Dates: start: 20080123
  2. SYNTHROID [Concomitant]
  3. LOVASTATIN [Concomitant]
  4. ATACAND [Concomitant]
  5. SPIRONOLACTONE [Concomitant]
  6. ASPIRIN [Concomitant]

REACTIONS (1)
  - APPLICATION SITE ERYTHEMA [None]
